FAERS Safety Report 19026202 (Version 1)
Quarter: 2021Q1

REPORT INFORMATION
  Report Type: Report from Study
  Country: DE (occurrence: DE)
  Receive Date: 20210318
  Receipt Date: 20210318
  Transmission Date: 20210420
  Serious: Yes (Hospitalization)
  Sender: FDA-Public Use
  Company Number: DE-SHIRE-DE201603830

PATIENT
  Age: 32 Year
  Sex: Male

DRUGS (2)
  1. IDURSULFASE [Suspect]
     Active Substance: IDURSULFASE
     Indication: MUCOPOLYSACCHARIDOSIS II
     Dosage: 0.54 MILLIGRAM/KILOGRAM, 1/WEEK
     Route: 041
     Dates: start: 20070618
  2. IDURSULFASE [Suspect]
     Active Substance: IDURSULFASE
     Dosage: 30 MILLIGRAM, 1/WEEK
     Route: 041
     Dates: start: 20141123

REACTIONS (1)
  - Excessive granulation tissue [Recovered/Resolved]

NARRATIVE: CASE EVENT DATE: 20151117
